FAERS Safety Report 9163772 (Version 1)
Quarter: 2013Q1

REPORT INFORMATION
  Report Type: Spontaneous
  Country: US (occurrence: US)
  Receive Date: 20130314
  Receipt Date: 20130314
  Transmission Date: 20140127
  Serious: Yes (Death)
  Sender: FDA-Public Use
  Company Number: US-PERRIGO-13US002424

PATIENT
  Sex: Female

DRUGS (3)
  1. ACETAMINOPHEN 650MG ER 544 [Suspect]
     Indication: INTENTIONAL DRUG MISUSE
     Dosage: UNK, UNK
     Route: 048
     Dates: start: 2011, end: 2011
  2. DIPHENHYDRAMINE HYDROCHLORIDE [Suspect]
     Indication: INTENTIONAL DRUG MISUSE
     Dosage: UNK, UNK
     Route: 048
     Dates: start: 2011, end: 2011
  3. QUETIAPINE [Suspect]
     Indication: INTENTIONAL DRUG MISUSE
     Dosage: UNK, UNK
     Route: 065
     Dates: start: 2011, end: 2011

REACTIONS (1)
  - Toxicity to various agents [Fatal]
